FAERS Safety Report 18480888 (Version 1)
Quarter: 2020Q4

REPORT INFORMATION
  Report Type: Spontaneous
  Country: US (occurrence: US)
  Receive Date: 20201109
  Receipt Date: 20201109
  Transmission Date: 20210114
  Serious: Yes (Disabling)
  Sender: FDA-Public Use
  Company Number: None

PATIENT
  Age: 42 Year
  Sex: Male
  Weight: 74.25 kg

DRUGS (5)
  1. COENZYME Q CREATINE [Concomitant]
  2. PREDNISONE. [Suspect]
     Active Substance: PREDNISONE
     Indication: PRODUCT USED FOR UNKNOWN INDICATION
     Dosage: ?          QUANTITY:3 TABLET(S);?
     Route: 048
     Dates: start: 20150708, end: 20200826
  3. LAMOTRIGINE. [Concomitant]
     Active Substance: LAMOTRIGINE
  4. BUPROPRION [Concomitant]
     Active Substance: BUPROPION
  5. LITHIUM. [Concomitant]
     Active Substance: LITHIUM

REACTIONS (6)
  - Asthenia [None]
  - Dysstasia [None]
  - Gait disturbance [None]
  - Peroneal nerve palsy [None]
  - Myalgia [None]
  - Myopathy [None]

NARRATIVE: CASE EVENT DATE: 20150812
